FAERS Safety Report 16772002 (Version 1)
Quarter: 2019Q3

REPORT INFORMATION
  Report Type: Report from Study
  Country: US (occurrence: US)
  Receive Date: 20190904
  Receipt Date: 20190904
  Transmission Date: 20191005
  Serious: Yes (Other)
  Sender: FDA-Public Use
  Company Number: US-MYLANLABS-2019M1082662

PATIENT
  Sex: Male

DRUGS (5)
  1. FLUOROURACIL INJECTION, USP [Suspect]
     Active Substance: FLUOROURACIL
     Indication: COLORECTAL CANCER METASTATIC
     Dosage: BOLUS: ADMINISTERED OVER 15 MINUTES IN A 14-DAY CYCLE
     Route: 065
  2. CALCIUM FOLINATE [Suspect]
     Active Substance: LEUCOVORIN CALCIUM
     Indication: COLORECTAL CANCER METASTATIC
     Dosage: ADMINISTERED OVER 2 HOURS IN A 14-DAY CYCLE
     Route: 065
  3. OXALIPLATIN INJECTION, USP [Suspect]
     Active Substance: OXALIPLATIN
     Indication: COLORECTAL CANCER METASTATIC
     Dosage: ON DAY 1 IN A 14-DAY CYCLE
     Route: 041
  4. FLUOROURACIL INJECTION, USP [Suspect]
     Active Substance: FLUOROURACIL
     Dosage: INFUSION: 2400 MG/M 2 OVER 46 HOURS IN A 14-DAY CYCLE
     Route: 065
  5. GENISTEIN [Suspect]
     Active Substance: GENISTEIN
     Indication: COLORECTAL CANCER METASTATIC
     Dosage: FOR 7 DAYS EVERY 2 WEEKS, BEGINNING 4 DAYS PRIOR TO THE FOLFOX REGIMEN, CONTINUED THROUGH DAYS 1-...
     Route: 065

REACTIONS (1)
  - Hypertension [Unknown]
